FAERS Safety Report 10882811 (Version 1)
Quarter: 2015Q1

REPORT INFORMATION
  Report Type: Other
  Country: GB (occurrence: GB)
  Receive Date: 20150303
  Receipt Date: 20150303
  Transmission Date: 20150721
  Serious: Yes (Hospitalization)
  Sender: FDA-Public Use
  Company Number: GB-MYLANLABS-2015M1005038

PATIENT

DRUGS (4)
  1. ASPIRIN. [Concomitant]
     Active Substance: ASPIRIN
     Indication: ANTIPLATELET THERAPY
     Dosage: 75 MG, QD
     Route: 048
     Dates: end: 201312
  2. IKOREL [Suspect]
     Active Substance: NICORANDIL
     Dosage: 10 MG, BID (START DATE: 4-6 YEARS AGO)
     Route: 048
     Dates: end: 201312
  3. NIFEDIPINE. [Concomitant]
     Active Substance: NIFEDIPINE
     Indication: HYPERTENSION
     Dosage: 1 DF, QD (6MG START DATE: 4-6 YEARS AGO)
     Route: 048
     Dates: end: 201312
  4. BISOPROLOL FUMARATE. [Suspect]
     Active Substance: BISOPROLOL FUMARATE
     Indication: HYPERTENSION
     Dosage: 1 DF, QD (2.5 START DATE: 4-6 YEARS AGO)
     Route: 048
     Dates: end: 201312

REACTIONS (2)
  - Cardiac arrest [Unknown]
  - Dizziness [Unknown]

NARRATIVE: CASE EVENT DATE: 201312
